FAERS Safety Report 12356821 (Version 1)
Quarter: 2016Q2

REPORT INFORMATION
  Report Type: Spontaneous
  Country: US (occurrence: US)
  Receive Date: 20160511
  Receipt Date: 20160511
  Transmission Date: 20160815
  Serious: No
  Sender: FDA-Public Use
  Company Number: US-PFIZER INC-2016219285

PATIENT
  Age: 43 Year
  Sex: Female

DRUGS (10)
  1. MORPHINE [Concomitant]
     Active Substance: MORPHINE
     Indication: FIBROMYALGIA
     Dosage: 30 MG, 2X/DAY
  2. MORPHINE [Concomitant]
     Active Substance: MORPHINE
     Indication: MUSCULOSKELETAL DISORDER
  3. SOMATROPIN [Suspect]
     Active Substance: SOMATROPIN
     Indication: FATIGUE
  4. SAVELLA [Concomitant]
     Active Substance: MILNACIPRAN HYDROCHLORIDE
     Indication: FIBROMYALGIA
     Dosage: UNK
  5. SAVELLA [Concomitant]
     Active Substance: MILNACIPRAN HYDROCHLORIDE
     Indication: MUSCULOSKELETAL DISORDER
  6. MORPHINE [Concomitant]
     Active Substance: MORPHINE
     Indication: FATIGUE
  7. MORPHINE [Concomitant]
     Active Substance: MORPHINE
     Indication: BACK DISORDER
  8. SAVELLA [Concomitant]
     Active Substance: MILNACIPRAN HYDROCHLORIDE
     Indication: FATIGUE
  9. SAVELLA [Concomitant]
     Active Substance: MILNACIPRAN HYDROCHLORIDE
     Indication: BACK DISORDER
  10. SOMATROPIN [Suspect]
     Active Substance: SOMATROPIN
     Indication: FIBROMYALGIA

REACTIONS (3)
  - Counterfeit drug administered [Unknown]
  - Drug ineffective for unapproved indication [Unknown]
  - Suspected counterfeit product [Unknown]
